FAERS Safety Report 5067910-6 (Version None)
Quarter: 2006Q3

REPORT INFORMATION
  Report Type: 
  Country: None (occurrence: None)
  Receive Date: 20060714
  Receipt Date: 20051107
  Transmission Date: 20061208
  Serious: Yes (Hospitalization)
  Sender: FDA-Public Use
  Company Number: HQWYE484010NOV05

PATIENT
  Sex: Female
  Weight: 62.65 kg

DRUGS (5)
  1. ADVIL [Suspect]
     Indication: BACK PAIN
     Dosage: 2 TABLET 3X PER 1 DAY
     Dates: start: 20040801, end: 20041101
  2. BEXTRA [Suspect]
     Indication: PAIN
  3. CELEBREX [Suspect]
     Indication: PAIN
  4. TYLENOL W/ CODEINE [Suspect]
     Indication: PAIN
  5. VIOXX [Suspect]
     Indication: PAIN

REACTIONS (1)
  - GASTRITIS [None]
